FAERS Safety Report 7677738-6 (Version None)
Quarter: 2011Q3

REPORT INFORMATION
  Report Type: 
  Country: None (occurrence: None)
  Receive Date: 20110811
  Receipt Date: 20110801
  Transmission Date: 20111222
  Serious: Yes (Other)
  Sender: FDA-Public Use
  Company Number: US-JNJFOC-20070602814

PATIENT
  Sex: Male
  Weight: 64 kg

DRUGS (3)
  1. INFLIXIMAB [Suspect]
     Dosage: TOTAL 26 DOSES
     Dates: start: 20061220
  2. INFLIXIMAB [Suspect]
     Indication: CROHN'S DISEASE
     Dates: start: 20020913
  3. HUMIRA [Concomitant]

REACTIONS (1)
  - CROHN'S DISEASE [None]
